FAERS Safety Report 8006758-7 (Version None)
Quarter: 2011Q4

REPORT INFORMATION
  Report Type: 
  Country: None (occurrence: None)
  Receive Date: 20111227
  Receipt Date: 20111220
  Transmission Date: 20120403
  Serious: Yes (Other)
  Sender: FDA-Public Use
  Company Number: US-JNJFOC-20111210075

PATIENT
  Age: 40 Year
  Sex: Female

DRUGS (1)
  1. FENTANYL-100 [Suspect]
     Indication: ARTHRALGIA
     Route: 062

REACTIONS (4)
  - FALL [None]
  - LIGAMENT SPRAIN [None]
  - WRONG TECHNIQUE IN DRUG USAGE PROCESS [None]
  - JOINT DISLOCATION [None]
